FAERS Safety Report 25796112 (Version 3)
Quarter: 2025Q4

REPORT INFORMATION
  Report Type: Spontaneous
  Country: JP (occurrence: JP)
  Receive Date: 20250912
  Receipt Date: 20251119
  Transmission Date: 20260117
  Serious: Yes (Life-Threatening, Hospitalization, Other)
  Sender: ABBVIE
  Company Number: JP-ABBVIE-6347897

PATIENT
  Age: 29 Year
  Sex: Male
  Weight: 44 kg

DRUGS (2)
  1. RINVOQ [Suspect]
     Active Substance: UPADACITINIB
     Indication: Colitis ulcerative
     Dosage: FORM STRENGTH 45 MILLIGRAM
     Route: 048
     Dates: start: 20240731, end: 20250331
  2. LIALDA [Concomitant]
     Active Substance: MESALAMINE
     Indication: Colitis ulcerative
     Dosage: 4800 MILLIGRAM
     Route: 048
     Dates: start: 20240331, end: 20250331

REACTIONS (8)
  - Gastrointestinal perforation [Recovering/Resolving]
  - Colitis ulcerative [Recovering/Resolving]
  - Enterocolitis [Unknown]
  - Abdominal pain [Not Recovered/Not Resolved]
  - Blood pressure decreased [Unknown]
  - Tachycardia [Unknown]
  - Peritonitis [Unknown]
  - Inflammatory bowel disease [Unknown]

NARRATIVE: CASE EVENT DATE: 20250305
